FAERS Safety Report 18767088 (Version 1)
Quarter: 2021Q1

REPORT INFORMATION
  Report Type: Spontaneous
  Country: US (occurrence: US)
  Receive Date: 20210120
  Receipt Date: 20210120
  Transmission Date: 20210419
  Serious: Yes (Other)
  Sender: FDA-Public Use
  Company Number: None

PATIENT
  Age: 35 Year
  Sex: Female
  Weight: 74.25 kg

DRUGS (11)
  1. LEVOTHYROXINE. [Concomitant]
     Active Substance: LEVOTHYROXINE
  2. CAPLYTA [Suspect]
     Active Substance: LUMATEPERONE
     Indication: SCHIZOPHRENIA
     Dosage: ?          QUANTITY:1 CAPSULE(S);?
     Route: 048
     Dates: start: 20210114
  3. CLONAZEPAM. [Concomitant]
     Active Substance: CLONAZEPAM
  4. OMEPRAZOLE. [Concomitant]
     Active Substance: OMEPRAZOLE
  5. ROLAIDS [Concomitant]
     Active Substance: CALCIUM CARBONATE\MAGNESIUM HYDROXIDE
  6. ZOLPIDIEM 10MG [Concomitant]
     Active Substance: ZOLPIDEM TARTRATE
  7. ALBUTEROL. [Concomitant]
     Active Substance: ALBUTEROL
  8. DULERA [Concomitant]
     Active Substance: FORMOTEROL FUMARATE DIHYDRATE\MOMETASONE FUROATE
  9. IBUPROFEN. [Concomitant]
     Active Substance: IBUPROFEN
  10. TYLENOL [Concomitant]
     Active Substance: ACETAMINOPHEN
  11. MUCINEX [Concomitant]
     Active Substance: GUAIFENESIN

REACTIONS (1)
  - Hiccups [None]

NARRATIVE: CASE EVENT DATE: 20210116
